FAERS Safety Report 7834083-3 (Version None)
Quarter: 2011Q4

REPORT INFORMATION
  Report Type: 
  Country: None (occurrence: None)
  Receive Date: 20111024
  Receipt Date: 20111024
  Transmission Date: 20120403
  Serious: Yes (Other)
  Sender: FDA-Public Use
  Company Number: None

PATIENT
  Sex: Female
  Weight: 78.925 kg

DRUGS (2)
  1. ONDANSETRON [Suspect]
     Indication: VOMITING
     Dosage: 4MG
     Route: 048
     Dates: start: 20111016, end: 20111018
  2. ONDANSETRON [Suspect]
     Indication: NAUSEA
     Dosage: 4MG
     Route: 048
     Dates: start: 20111016, end: 20111018

REACTIONS (3)
  - ADVERSE EVENT [None]
  - CONDITION AGGRAVATED [None]
  - DRUG INEFFECTIVE [None]
